FAERS Safety Report 5109873-0 (Version None)
Quarter: 2006Q3

REPORT INFORMATION
  Report Type: 
  Country: None (occurrence: None)
  Receive Date: 20060919
  Receipt Date: 20060919
  Transmission Date: 20061208
  Serious: Yes (Other)
  Sender: FDA-Public Use
  Company Number: None

PATIENT
  Sex: Female
  Weight: 72.1219 kg

DRUGS (4)
  1. VANCOMYCIN [Suspect]
     Indication: PROPHYLAXIS
     Dosage: 1 GRAM  PRE-OP  IV   ONE DOSE ONLY
     Route: 042
     Dates: start: 20060914, end: 20060914
  2. VANCOMYCIN [Suspect]
     Indication: SURGERY
     Dosage: 1 GRAM  PRE-OP  IV   ONE DOSE ONLY
     Route: 042
     Dates: start: 20060914, end: 20060914
  3. TRASYLOL [Suspect]
     Dosage: 600ML  INTRAOPERATIVE  IV   INTRAOP
     Route: 042
     Dates: start: 20060914, end: 20060914
  4. APROTININ [Concomitant]

REACTIONS (2)
  - DEAFNESS [None]
  - POST PROCEDURAL COMPLICATION [None]
